FAERS Safety Report 7342184-1 (Version None)
Quarter: 2011Q1

REPORT INFORMATION
  Report Type: 
  Country: None (occurrence: None)
  Receive Date: 20110309
  Receipt Date: 20110304
  Transmission Date: 20110831
  Serious: Yes (Death)
  Sender: FDA-Public Use
  Company Number: AU-ABBOTT-11P-008-0710306-00

PATIENT
  Age: 78 Year
  Sex: Female

DRUGS (1)
  1. TRANDOLAPRIL [Suspect]
     Indication: PRODUCT USED FOR UNKNOWN INDICATION

REACTIONS (3)
  - ANGIOEDEMA [None]
  - ACQUIRED MACROGLOSSIA [None]
  - OBSTRUCTIVE AIRWAYS DISORDER [None]
